FAERS Safety Report 9822118 (Version 1)
Quarter: 2014Q1

REPORT INFORMATION
  Report Type: Spontaneous
  Country: DO (occurrence: DO)
  Receive Date: 20140116
  Receipt Date: 20140116
  Transmission Date: 20141002
  Serious: Yes (Other)
  Sender: FDA-Public Use
  Company Number: DO-ASTRAZENECA-2014SE02940

PATIENT
  Sex: Male

DRUGS (3)
  1. BRILINTA [Suspect]
     Route: 048
  2. ASPIRIN [Concomitant]
     Route: 048
  3. HEPARIN [Concomitant]

REACTIONS (1)
  - Thrombosis [Recovered/Resolved]
